FAERS Safety Report 10045690 (Version 1)
Quarter: 2014Q1

REPORT INFORMATION
  Report Type: Spontaneous
  Country: US (occurrence: None)
  Receive Date: 20140306
  Receipt Date: 20140306
  Transmission Date: 20141002
  Serious: Yes (Other)
  Sender: FDA-Public Use
  Company Number: 163-21880-13060001

PATIENT
  Age: 80 Year
  Sex: Female
  Weight: 51.71 kg

DRUGS (16)
  1. REVLIMID (LENALIDOMIDE) (25 MILLIGRAM, CAPSULES) [Suspect]
     Indication: PLASMA CELL MYELOMA
     Dosage: 25 MG, 14 IN 28 D, PO
     Route: 048
     Dates: start: 201212, end: 20130530
  2. DEXAMETHASONE (DEXAMETHASONE) [Concomitant]
  3. ZOMETA (ZOLEDRONIC ACID) [Concomitant]
  4. AMBIEN (ZOLPIDEM TARTRATE) (TABLETS) [Concomitant]
  5. ASCORBIC ACID (ASCORBIC ACID) (TABLETS) [Concomitant]
  6. ASPIRIN (ACETYLSALICYLIC ACID) (TABLETS) [Concomitant]
  7. VITAMIN D3 (COLECALCIFEROL) (CAPSULES) [Concomitant]
  8. CITRACAL + D (CITRACAL) + D) (TABLETS) [Concomitant]
  9. CALCIUM (CALCIUM) (CHEWABLE TABLET) [Concomitant]
  10. CITRUCEL (METHYLCELLULOSE) (TABLETS) [Concomitant]
  11. CYANOCOBALAMIN (CYANOCOBALAMIN) (TABLETS) [Concomitant]
  12. DULCOLAX (BISACODYL) (TABLETS) [Concomitant]
  13. METOPROLOL TARTRATE (METOPROLOL TARTRATE) (TABLETS) [Concomitant]
  14. OS-CAL 500 + D (CALCITE D) (TABLETS) [Concomitant]
  15. PROBIOTIC ALL FLORA (BIFIDOBACTERIUM LACTIS) [Concomitant]
  16. TYLENOL (PARACETAMOL) (TABLETS) [Concomitant]

REACTIONS (2)
  - Rash papular [None]
  - Anaemia [None]
